FAERS Safety Report 9348622 (Version 3)
Quarter: 2015Q1

REPORT INFORMATION
  Report Type: Spontaneous
  Country: US (occurrence: US)
  Receive Date: 20130614
  Receipt Date: 20150120
  Transmission Date: 20150721
  Serious: Yes (Life-Threatening, Hospitalization, Disabling, Other)
  Sender: FDA-Public Use
  Company Number: US-BAYER-2013-069380

PATIENT
  Age: 32 Year
  Sex: Female
  Weight: 72.56 kg

DRUGS (3)
  1. IBUPROFEN. [Concomitant]
     Active Substance: IBUPROFEN
     Dosage: UNK
     Route: 048
     Dates: start: 20110228
  2. LESSINA [Concomitant]
     Active Substance: ETHINYL ESTRADIOL\LEVONORGESTREL
  3. MIRENA [Suspect]
     Active Substance: LEVONORGESTREL
     Indication: CONTRACEPTION
     Dosage: 20 MCG/24HR, CONT
     Route: 015
     Dates: start: 20080301, end: 20110608

REACTIONS (16)
  - Uterine perforation [None]
  - Genital haemorrhage [None]
  - Back pain [None]
  - Anxiety [None]
  - Gait disturbance [None]
  - Balance disorder [None]
  - Decreased activity [None]
  - Pelvic pain [None]
  - Abdominal pain lower [None]
  - Menstrual disorder [None]
  - Injury [None]
  - Dysmenorrhoea [None]
  - Menorrhagia [None]
  - General physical health deterioration [None]
  - Anhedonia [None]
  - Dyspareunia [None]

NARRATIVE: CASE EVENT DATE: 2010
